FAERS Safety Report 9182195 (Version 1)
Quarter: 2013Q1

REPORT INFORMATION
  Report Type: Spontaneous
  Country: US (occurrence: None)
  Receive Date: 20130321
  Receipt Date: 20130321
  Transmission Date: 20140127
  Serious: Yes (Life-Threatening, Hospitalization)
  Sender: FDA-Public Use
  Company Number: None

PATIENT
  Age: 14 Year
  Sex: Female

DRUGS (3)
  1. IBUPROFEN 800 MG [Suspect]
     Dosage: 800 MG ONCE ORAL
     Route: 048
     Dates: start: 20121220
  2. HEPARIN [Concomitant]
  3. PRENATAL VITAMINS [Concomitant]

REACTIONS (2)
  - Anaphylactic reaction [None]
  - Angioedema [None]
